FAERS Safety Report 7383357-1 (Version None)
Quarter: 2011Q1

REPORT INFORMATION
  Report Type: 
  Country: None (occurrence: None)
  Receive Date: 20110330
  Receipt Date: 20110318
  Transmission Date: 20110831
  Serious: Yes (Other)
  Sender: FDA-Public Use
  Company Number: BR-JNJFOC-20110311531

PATIENT
  Sex: Male
  Weight: 78.6 kg

DRUGS (1)
  1. TRAMAL [Suspect]
     Indication: PRODUCT USED FOR UNKNOWN INDICATION
     Dosage: LAST PRESCRIBED DOSAGE 100 MG)
     Route: 065

REACTIONS (1)
  - BLOOD PRESSURE DECREASED [None]
